FAERS Safety Report 9172640 (Version 1)
Quarter: 2012Q4

REPORT INFORMATION
  Report Type: 
  Country: ES (occurrence: ES)
  Receive Date: 20120911
  Receipt Date: 20120911
  Transmission Date: 20130627
  Serious: Yes (Other)
  Sender: FDA-Public Use
  Company Number: ES-BAXTER-2012BAX016603

PATIENT
  Age: 39 Year
  Sex: Male

DRUGS (3)
  1. TISSUCOL [Suspect]
     Indication: TISSUE SEALING
  2. MEPIVACAINE [Concomitant]
     Indication: ANESTHESIA LOCAL
  3. SALINE [Concomitant]
     Indication: DRUG USE FOR UNKNOWN INDICATION

REACTIONS (1)
  - Anal abscess [Recovered/Resolved]
